FAERS Safety Report 25248761 (Version 1)
Quarter: 2025Q2

REPORT INFORMATION
  Report Type: Spontaneous
  Country: US (occurrence: US)
  Receive Date: 20250429
  Receipt Date: 20250429
  Transmission Date: 20250716
  Serious: Yes (Other)
  Sender: BEIGENE
  Company Number: US-BEIGENE-BGN-2025-006722

PATIENT
  Age: 84 Year

DRUGS (4)
  1. BRUKINSA [Suspect]
     Active Substance: ZANUBRUTINIB
     Indication: Product used for unknown indication
     Dosage: 240 MILLIGRAM, QD
  2. BRUKINSA [Suspect]
     Active Substance: ZANUBRUTINIB
     Dosage: 240 MILLIGRAM, QD
     Route: 048
  3. BRUKINSA [Suspect]
     Active Substance: ZANUBRUTINIB
     Dosage: 240 MILLIGRAM, QD
     Route: 048
  4. BRUKINSA [Suspect]
     Active Substance: ZANUBRUTINIB
     Dosage: 240 MILLIGRAM, QD

REACTIONS (1)
  - Foreign body in throat [Unknown]
